FAERS Safety Report 10195066 (Version 3)
Quarter: 2014Q2

REPORT INFORMATION
  Report Type: Report from Study
  Country: AU (occurrence: AU)
  Receive Date: 20140526
  Receipt Date: 20140617
  Transmission Date: 20141212
  Serious: Yes (Other)
  Sender: FDA-Public Use
  Company Number: PHHY2014AU063300

PATIENT
  Sex: Male

DRUGS (1)
  1. ACLASTA [Suspect]
     Dosage: 5 MG, UNK
     Route: 042
     Dates: start: 201211

REACTIONS (8)
  - Osteoporosis [Unknown]
  - Pain [Unknown]
  - Bone pain [Unknown]
  - Lung disorder [Unknown]
  - Weight decreased [Unknown]
  - Migraine [Unknown]
  - Malaise [Unknown]
  - Vomiting [Unknown]
